FAERS Safety Report 6417092-0 (Version None)
Quarter: 2009Q4

REPORT INFORMATION
  Report Type: 
  Country: None (occurrence: None)
  Receive Date: 20091028
  Receipt Date: 20091026
  Transmission Date: 20100525
  Serious: Yes (Other)
  Sender: FDA-Public Use
  Company Number: US-TEVA-213308USA

PATIENT
  Age: 53 Year
  Sex: Female

DRUGS (4)
  1. RIBAVIRIN [Suspect]
     Indication: HEPATITIS C
  2. RIBAVIRIN [Suspect]
     Indication: LEUKOCYTOCLASTIC VASCULITIS
  3. PEGINTERFERON ALFA-2A [Suspect]
     Indication: HEPATITIS C
  4. PEGINTERFERON ALFA-2A [Suspect]
     Indication: LEUKOCYTOCLASTIC VASCULITIS

REACTIONS (2)
  - ANTIPHOSPHOLIPID SYNDROME [None]
  - CUTANEOUS SARCOIDOSIS [None]
